FAERS Safety Report 9670993 (Version 1)
Quarter: 2013Q4

REPORT INFORMATION
  Report Type: Spontaneous
  Country: US (occurrence: None)
  Receive Date: 20131105
  Receipt Date: 20131105
  Transmission Date: 20140711
  Serious: No
  Sender: FDA-Public Use
  Company Number: None

PATIENT
  Age: 30 Year
  Sex: Female
  Weight: 59.42 kg

DRUGS (1)
  1. BUPRENORPHINE HCL AND NALOXONE HCL [Suspect]
     Indication: DRUG DEPENDENCE
     Dosage: ONCE DAILY TAKEN UNDER THE TONGUE
     Dates: start: 20131102, end: 20131104

REACTIONS (3)
  - Drug withdrawal syndrome [None]
  - Drug ineffective [None]
  - Product substitution issue [None]
